FAERS Safety Report 24872098 (Version 4)
Quarter: 2025Q3

REPORT INFORMATION
  Report Type: Report from Study
  Country: US (occurrence: US)
  Receive Date: 20250122
  Receipt Date: 20250701
  Transmission Date: 20251021
  Serious: Yes (Other)
  Sender: SUNOVION
  Company Number: US-SMPA-2025SPA000221

PATIENT

DRUGS (2)
  1. ORGOVYX [Suspect]
     Active Substance: RELUGOLIX
     Indication: Prostate cancer
     Dosage: 120 MG, QD
     Route: 048
     Dates: start: 20241224
  2. XTANDI [Concomitant]
     Active Substance: ENZALUTAMIDE
     Indication: Product used for unknown indication
     Route: 065

REACTIONS (8)
  - Pneumonia [Unknown]
  - Neuralgia [Unknown]
  - Gynaecomastia [Unknown]
  - Oedema peripheral [Unknown]
  - Diarrhoea [Unknown]
  - Hot flush [Unknown]
  - Weight increased [Unknown]
  - Incorrect dose administered [Unknown]
